FAERS Safety Report 5413727-X (Version None)
Quarter: 2007Q3

REPORT INFORMATION
  Report Type: 
  Country: None (occurrence: None)
  Receive Date: 20070713
  Receipt Date: 20070508
  Transmission Date: 20080115
  Serious: Yes (Other)
  Sender: FDA-Public Use
  Company Number: US-JNJFOC-20061100893

PATIENT
  Age: 16 Year
  Sex: Female
  Weight: 101.6057 kg

DRUGS (5)
  1. ORTHO EVRA [Suspect]
     Indication: MENSTRUATION IRREGULAR
     Dosage: TRANSDERMAL
     Route: 062
     Dates: start: 20050314, end: 20051111
  2. TETRACYCLINE [Concomitant]
  3. CLARITIN [Concomitant]
  4. PHENERGAN [Concomitant]
  5. RHINOCORT [Concomitant]

REACTIONS (2)
  - DEEP VEIN THROMBOSIS [None]
  - PHARMACEUTICAL PRODUCT COMPLAINT [None]
